FAERS Safety Report 18991998 (Version 1)
Quarter: 2021Q1

REPORT INFORMATION
  Report Type: Spontaneous
  Country: US (occurrence: US)
  Receive Date: 20210310
  Receipt Date: 20210310
  Transmission Date: 20210420
  Serious: No
  Sender: FDA-Public Use
  Company Number: US-CELGENEUS-USA-20210207329

PATIENT
  Age: 81 Year
  Sex: Female
  Weight: 82.17 kg

DRUGS (4)
  1. REVLIMID [Suspect]
     Active Substance: LENALIDOMIDE
     Indication: MYELODYSPLASTIC SYNDROME
     Dosage: 10 MILLIGRAM
     Route: 048
     Dates: start: 201411
  2. REVLIMID [Suspect]
     Active Substance: LENALIDOMIDE
     Dosage: 5 MILLIGRAM
     Route: 048
     Dates: start: 201412
  3. REVLIMID [Suspect]
     Active Substance: LENALIDOMIDE
     Dosage: 2.5 MILLIGRAM
     Route: 048
     Dates: start: 201701
  4. REVLIMID [Suspect]
     Active Substance: LENALIDOMIDE
     Dosage: 2.5 MILLIGRAM
     Route: 048
     Dates: start: 20190826

REACTIONS (8)
  - Feeling abnormal [Unknown]
  - SARS-CoV-2 test positive [Unknown]
  - Chills [Unknown]
  - Gait disturbance [Unknown]
  - Nausea [Unknown]
  - Presyncope [Unknown]
  - Illness [Unknown]
  - Tremor [Unknown]

NARRATIVE: CASE EVENT DATE: 20210217
